FAERS Safety Report 10242629 (Version 2)
Quarter: 2014Q2

REPORT INFORMATION
  Report Type: Spontaneous
  Country: US (occurrence: US)
  Receive Date: 20140617
  Receipt Date: 20140624
  Transmission Date: 20141212
  Serious: Yes (Other)
  Sender: FDA-Public Use
  Company Number: US-TEVA-487995USA

PATIENT
  Age: 90 Year
  Sex: Male

DRUGS (3)
  1. AZILECT [Suspect]
     Indication: PARKINSONISM
     Dates: start: 2012, end: 20140605
  2. AZILECT [Suspect]
     Dates: start: 201406
  3. GABAPENTIN [Concomitant]
     Indication: NEUROPATHY PERIPHERAL

REACTIONS (5)
  - Bedridden [Not Recovered/Not Resolved]
  - Muscle rigidity [Not Recovered/Not Resolved]
  - Mobility decreased [Not Recovered/Not Resolved]
  - Masked facies [Not Recovered/Not Resolved]
  - Drug ineffective [Recovering/Resolving]
